FAERS Safety Report 14864368 (Version 1)
Quarter: 2018Q2

REPORT INFORMATION
  Report Type: Spontaneous
  Country: US (occurrence: US)
  Receive Date: 20180508
  Receipt Date: 20180508
  Transmission Date: 20180711
  Serious: No
  Sender: FDA-Public Use
  Company Number: US-ALKERMES INC.-ALK-2017-002779

PATIENT
  Age: 51 Year
  Sex: Female
  Weight: 53.52 kg

DRUGS (5)
  1. MELOXICAM. [Concomitant]
     Active Substance: MELOXICAM
     Indication: PRODUCT USED FOR UNKNOWN INDICATION
  2. NALTREXONE [Suspect]
     Active Substance: NALTREXONE
     Indication: ALCOHOLISM
     Dosage: UNK
     Route: 065
     Dates: start: 20170423
  3. TRAMADOL. [Concomitant]
     Active Substance: TRAMADOL
     Indication: PRODUCT USED FOR UNKNOWN INDICATION
  4. VIVITROL [Suspect]
     Active Substance: NALTREXONE
     Indication: ALCOHOLISM
     Dosage: 380 MG, QMO
     Route: 030
     Dates: start: 20170317
  5. LEXAPRO [Concomitant]
     Active Substance: ESCITALOPRAM OXALATE
     Indication: PRODUCT USED FOR UNKNOWN INDICATION

REACTIONS (16)
  - Rheumatoid arthritis [Recovering/Resolving]
  - Fibromyalgia [Not Recovered/Not Resolved]
  - Pain [Recovering/Resolving]
  - Apathy [Unknown]
  - Suicidal ideation [Unknown]
  - Arthralgia [Recovering/Resolving]
  - Anxiety [Unknown]
  - Loss of personal independence in daily activities [Unknown]
  - Myalgia [Recovering/Resolving]
  - Depression [Not Recovered/Not Resolved]
  - Morbid thoughts [Unknown]
  - Therapeutic response shortened [Unknown]
  - Hypokinesia [Unknown]
  - Toothache [Unknown]
  - Tooth abscess [Recovered/Resolved]
  - Gait disturbance [Unknown]

NARRATIVE: CASE EVENT DATE: 2017
